FAERS Safety Report 7285253-7 (Version None)
Quarter: 2011Q1

REPORT INFORMATION
  Report Type: 
  Country: None (occurrence: None)
  Receive Date: 20110210
  Receipt Date: 20110201
  Transmission Date: 20110831
  Serious: Yes (Death, Hospitalization)
  Sender: FDA-Public Use
  Company Number: GB-MPIJNJ-2010-05388

PATIENT

DRUGS (8)
  1. CYCLIZINE [Concomitant]
     Dosage: 50 MG, UNK
  2. ARANESP [Concomitant]
     Indication: ANAEMIA
     Dosage: 150 UG, 1/WEEK
     Route: 058
  3. VELCADE [Suspect]
     Indication: MULTIPLE MYELOMA
     Dosage: 1 MG, CYCLIC
     Route: 065
     Dates: start: 20100204, end: 20100429
  4. MORPHINE SULFATE [Concomitant]
     Indication: CANCER PAIN
     Dosage: 20 MG, BID
  5. LANSOPRAZOLE [Concomitant]
     Indication: GASTRITIS
     Dosage: 30 MG, UNK
  6. ALBUTEROL [Concomitant]
     Indication: ASTHMA
     Dosage: UNK
  7. PARACETAMOL [Concomitant]
     Indication: CANCER PAIN
     Dosage: 1 G, PRN
  8. ATROVENT [Concomitant]
     Indication: ASTHMA
     Dosage: 20 UG, BID

REACTIONS (4)
  - THROMBOCYTOPENIA [None]
  - DRUG INEFFECTIVE [None]
  - MULTIPLE MYELOMA [None]
  - NEUTROPENIA [None]
